APPROVED DRUG PRODUCT: RANITIDINE HYDROCHLORIDE
Active Ingredient: RANITIDINE HYDROCHLORIDE
Strength: EQ 15MG BASE/ML
Dosage Form/Route: SYRUP;ORAL
Application: A090623 | Product #001
Applicant: AUROBINDO PHARMA LTD
Approved: Jul 28, 2010 | RLD: No | RS: No | Type: DISCN